FAERS Safety Report 5907510-6 (Version None)
Quarter: 2008Q4

REPORT INFORMATION
  Report Type: 
  Country: None (occurrence: None)
  Receive Date: 20081003
  Receipt Date: 20080930
  Transmission Date: 20090506
  Serious: Yes (Hospitalization)
  Sender: FDA-Public Use
  Company Number: FR-BRISTOL-MYERS SQUIBB COMPANY-14354294

PATIENT
  Age: 14 Year
  Sex: Male

DRUGS (9)
  1. COUMADIN [Suspect]
     Dates: start: 20080711, end: 20080726
  2. HEPARIN SODIUM [Suspect]
     Dosage: 1DOSAGE FORM = 500IU/KG/DAY
     Dates: end: 20080720
  3. DIAMOX [Suspect]
     Dates: start: 20080709, end: 20080730
  4. DIFFU-K [Suspect]
     Dates: start: 20080709
  5. DOLIPRANE [Concomitant]
  6. TRAMADOL HCL [Concomitant]
  7. NUBAIN [Concomitant]
  8. LAROXYL [Concomitant]
  9. DEXTROSE 5% [Concomitant]

REACTIONS (1)
  - ARTHRALGIA [None]
